FAERS Safety Report 23920481 (Version 1)
Quarter: 2024Q2

REPORT INFORMATION
  Report Type: Spontaneous
  Country: US (occurrence: US)
  Receive Date: 20240530
  Receipt Date: 20240530
  Transmission Date: 20240715
  Serious: Yes (Other)
  Sender: FDA-Public Use
  Company Number: US-ACS-20240175

PATIENT
  Age: 35 Year
  Sex: Male

DRUGS (4)
  1. MEROPENEM [Suspect]
     Active Substance: MEROPENEM
     Indication: Systemic mycosis
     Dosage: ()
     Dates: start: 20160720
  2. TELAVANCIN [Suspect]
     Active Substance: TELAVANCIN
     Indication: Systemic mycosis
  3. POLYMYXIN B [Suspect]
     Active Substance: POLYMYXIN B
     Indication: Systemic mycosis
  4. CRESEMBA [Suspect]
     Active Substance: ISAVUCONAZONIUM SULFATE
     Indication: Systemic mycosis
     Dosage: ()
     Dates: start: 20160720

REACTIONS (2)
  - Rhabdomyolysis [Not Recovered/Not Resolved]
  - Off label use [Unknown]
